FAERS Safety Report 7600093-4 (Version None)
Quarter: 2011Q3

REPORT INFORMATION
  Report Type: 
  Country: None (occurrence: None)
  Receive Date: 20110711
  Receipt Date: 20110704
  Transmission Date: 20111222
  Serious: Yes (Other)
  Sender: FDA-Public Use
  Company Number: FR-JNJFOC-20110512314

PATIENT
  Sex: Male

DRUGS (1)
  1. RISPERDAL CONSTA [Suspect]
     Indication: PARANOIA
     Route: 030

REACTIONS (9)
  - ASPERMIA [None]
  - DYSPEPSIA [None]
  - SWELLING [None]
  - DRUG INEFFECTIVE [None]
  - PHOTOSENSITIVITY ALLERGIC REACTION [None]
  - ABDOMINAL DISTENSION [None]
  - WEIGHT INCREASED [None]
  - DISTURBANCE IN ATTENTION [None]
  - ROAD TRAFFIC ACCIDENT [None]
